FAERS Safety Report 6505759-5 (Version None)
Quarter: 2009Q4

REPORT INFORMATION
  Report Type: 
  Country: None (occurrence: None)
  Receive Date: 20091217
  Receipt Date: 20091217
  Transmission Date: 20100525
  Serious: Yes (Other)
  Sender: FDA-Public Use
  Company Number: None

PATIENT
  Sex: Male
  Weight: 109.3169 kg

DRUGS (2)
  1. RAD001 (EVEROLIMUS) NOVARTIS [Suspect]
     Indication: PROSTATE CANCER
     Dosage: 10 MG DAILY PO
     Route: 048
     Dates: start: 20080429
  2. BICALUTAMIDE [Suspect]
     Dosage: 10 MG DAILY PO
     Route: 048
     Dates: start: 20080429

REACTIONS (1)
  - DEEP VEIN THROMBOSIS [None]
